FAERS Safety Report 18031341 (Version 1)
Quarter: 2020Q3

REPORT INFORMATION
  Report Type: Spontaneous
  Country: US (occurrence: US)
  Receive Date: 20200715
  Receipt Date: 20200715
  Transmission Date: 20201103
  Serious: Yes (Death)
  Sender: FDA-Public Use
  Company Number: None

PATIENT
  Sex: Male

DRUGS (11)
  1. CYCLOPHOSPHAMIDE 50MG CAP [Suspect]
     Active Substance: CYCLOPHOSPHAMIDE
     Indication: HYPERKALAEMIA
     Route: 048
     Dates: start: 20200222
  2. FENOFIBRATE. [Concomitant]
     Active Substance: FENOFIBRATE
  3. POT CL MICRO [Concomitant]
  4. FUROSEMIDE. [Concomitant]
     Active Substance: FUROSEMIDE
  5. MUPIROCIN. [Concomitant]
     Active Substance: MUPIROCIN
  6. CARVEDILOL. [Concomitant]
     Active Substance: CARVEDILOL
  7. DEXAMETHASON [Concomitant]
     Active Substance: DEXAMETHASONE
  8. METOLAZONE. [Concomitant]
     Active Substance: METOLAZONE
  9. WARFARIN [Concomitant]
     Active Substance: WARFARIN
  10. ATORVASTATIN [Concomitant]
     Active Substance: ATORVASTATIN
  11. CEPHALEXIN. [Concomitant]
     Active Substance: CEPHALEXIN

REACTIONS (1)
  - Death [None]
